FAERS Safety Report 5657304-4 (Version None)
Quarter: 2008Q1

REPORT INFORMATION
  Report Type: 
  Country: None (occurrence: None)
  Receive Date: 20080310
  Receipt Date: 20080303
  Transmission Date: 20080703
  Serious: Yes (Other)
  Sender: FDA-Public Use
  Company Number: GB-PFIZER INC-2008020200

PATIENT
  Age: 52 Year
  Sex: Male
  Weight: 73.1 kg

DRUGS (2)
  1. CHANTIX [Suspect]
     Indication: SMOKING CESSATION THERAPY
     Route: 048
     Dates: start: 20080131, end: 20080207
  2. AMOXICILLIN + CLAVULANATE POTASSIUM [Concomitant]

REACTIONS (5)
  - AGGRESSION [None]
  - EMOTIONAL DISORDER [None]
  - MOOD SWINGS [None]
  - PERSONALITY CHANGE [None]
  - RASH [None]
